FAERS Safety Report 17687357 (Version 4)
Quarter: 2020Q2

REPORT INFORMATION
  Report Type: Spontaneous
  Country: US (occurrence: US)
  Receive Date: 20200421
  Receipt Date: 20200623
  Transmission Date: 20200714
  Serious: Yes (Other)
  Sender: FDA-Public Use
  Company Number: US-BIOGEN-2020BI00864034

PATIENT
  Age: 44 Year
  Sex: Female

DRUGS (1)
  1. TYSABRI [Suspect]
     Active Substance: NATALIZUMAB
     Indication: MULTIPLE SCLEROSIS
     Route: 042
     Dates: start: 20120907, end: 20191226

REACTIONS (7)
  - Disturbance in attention [Unknown]
  - Memory impairment [Unknown]
  - Diabetes mellitus [Unknown]
  - Anxiety [Not Recovered/Not Resolved]
  - Boredom [Recovered/Resolved]
  - Confusional state [Recovered/Resolved]
  - Stress [Recovered/Resolved]

NARRATIVE: CASE EVENT DATE: 201904
